FAERS Safety Report 8935581 (Version 4)
Quarter: 2015Q2

REPORT INFORMATION
  Report Type: Spontaneous
  Country: US (occurrence: US)
  Receive Date: 20121130
  Receipt Date: 20150526
  Transmission Date: 20150821
  Serious: No
  Sender: FDA-Public Use
  Company Number: US-009507513-1211USA011503

PATIENT
  Sex: Male

DRUGS (1)
  1. PROPECIA [Suspect]
     Active Substance: FINASTERIDE
     Indication: ALOPECIA
     Dosage: 1 MG, UNK
     Route: 048
     Dates: start: 201009, end: 20110725

REACTIONS (9)
  - Sexual dysfunction [Not Recovered/Not Resolved]
  - Cognitive disorder [Not Recovered/Not Resolved]
  - Blood testosterone decreased [Unknown]
  - Erectile dysfunction [Unknown]
  - Renal cyst [Unknown]
  - Sperm concentration decreased [Unknown]
  - Semen volume decreased [Unknown]
  - Loss of libido [Unknown]
  - Infertility [Unknown]

NARRATIVE: CASE EVENT DATE: 201103
